FAERS Safety Report 16023641 (Version 5)
Quarter: 2022Q2

REPORT INFORMATION
  Report Type: Spontaneous
  Country: JP (occurrence: None)
  Receive Date: 20190301
  Receipt Date: 20220523
  Transmission Date: 20220721
  Serious: Yes (Other)
  Sender: FDA-Public Use
  Company Number: 2019SE32076

PATIENT
  Age: 50 Year
  Sex: Male
  Weight: 52 kg

DRUGS (7)
  1. IMFINZI [Suspect]
     Active Substance: DURVALUMAB
     Indication: Non-small cell lung cancer
     Route: 041
     Dates: start: 20180919
  2. NEXIUM [Concomitant]
     Active Substance: ESOMEPRAZOLE MAGNESIUM
     Route: 048
     Dates: start: 20171211
  3. CALONAL [Concomitant]
     Active Substance: ACETAMINOPHEN
     Dosage: 1000 MG MILLIGRAM(S): EVERY 4 TIMES DAY
     Route: 048
     Dates: start: 20180206
  4. CELECOXIB [Concomitant]
     Active Substance: CELECOXIB
     Route: 048
     Dates: start: 20171211
  5. LYRICA [Concomitant]
     Active Substance: PREGABALIN
     Route: 048
     Dates: start: 20171211
  6. METHADONE HYDROCHLORIDE [Concomitant]
     Active Substance: METHADONE HYDROCHLORIDE
     Route: 048
     Dates: start: 20180918
  7. OXINORM [Concomitant]
     Dosage: 20.0MG AS REQUIRED
     Route: 048
     Dates: start: 20180402

REACTIONS (4)
  - Cerebral vascular occlusion [Unknown]
  - Cortical laminar necrosis [Not Recovered/Not Resolved]
  - Cerebrovascular insufficiency [Unknown]
  - Thyroid disorder [Unknown]

NARRATIVE: CASE EVENT DATE: 20190201
